FAERS Safety Report 9970614 (Version 2)
Quarter: 2014Q3

REPORT INFORMATION
  Report Type: Spontaneous
  Country: US (occurrence: None)
  Receive Date: 20140304
  Receipt Date: 20140702
  Transmission Date: 20150326
  Serious: Yes (Other)
  Sender: FDA-Public Use
  Company Number: 2014-US-002270

PATIENT
  Age: 34 Year
  Sex: Male

DRUGS (2)
  1. XYREM [Suspect]
     Active Substance: SODIUM OXYBATE
     Indication: CATAPLEXY
     Route: 048
     Dates: start: 200908, end: 2009
  2. XYREM [Suspect]
     Active Substance: SODIUM OXYBATE
     Indication: NARCOLEPSY
     Route: 048
     Dates: start: 200908, end: 2009

REACTIONS (2)
  - Convulsion [None]
  - Cataplexy [None]

NARRATIVE: CASE EVENT DATE: 20140219
